FAERS Safety Report 9514037 (Version 1)
Quarter: 2013Q3

REPORT INFORMATION
  Report Type: Spontaneous
  Country: US (occurrence: US)
  Receive Date: 20130910
  Receipt Date: 20130910
  Transmission Date: 20140515
  Serious: No
  Sender: FDA-Public Use
  Company Number: US-UPSHER-SMITH LABORATORIES, INC.-13000093

PATIENT
  Age: 83 Year
  Sex: Male

DRUGS (6)
  1. OXYBUTYNIN CHLORIDE [Suspect]
     Indication: HYPERTONIC BLADDER
     Dosage: UNK, QD
     Route: 048
     Dates: start: 20120925, end: 20121004
  2. LUMIGAN [Concomitant]
     Indication: OPEN ANGLE GLAUCOMA
     Dosage: UNK
  3. ALPHAGAN /01341101/ [Concomitant]
     Indication: OPEN ANGLE GLAUCOMA
     Dosage: UNK
  4. LEVOTHYROXINE [Concomitant]
     Dosage: UNK
  5. UNSPECIFIED BLOOD PRESSURE MEDICATION [Concomitant]
  6. ENABLEX /01760401/ [Suspect]
     Indication: HYPERTONIC BLADDER
     Dosage: UNK, QD
     Route: 048
     Dates: start: 20121023, end: 20121030

REACTIONS (3)
  - Rash [Recovering/Resolving]
  - Pruritus [Recovered/Resolved]
  - Dry mouth [Not Recovered/Not Resolved]
